FAERS Safety Report 26052597 (Version 1)
Quarter: 2025Q4

REPORT INFORMATION
  Report Type: Spontaneous
  Country: EU (occurrence: EU)
  Receive Date: 20251117
  Receipt Date: 20251117
  Transmission Date: 20260118
  Serious: Yes (Death, Other)
  Sender: AUROBINDO
  Company Number: EU-AFSSAPS-PB2025001360

PATIENT
  Age: 64 Year
  Sex: Male
  Weight: 60 kg

DRUGS (4)
  1. CARBOPLATIN [Suspect]
     Active Substance: CARBOPLATIN
     Indication: High grade B-cell lymphoma Burkitt-like lymphoma
     Dosage: 590 MILLIGRAM
     Dates: start: 20251010, end: 20251010
  2. RITUXIMAB [Suspect]
     Active Substance: RITUXIMAB
     Indication: High grade B-cell lymphoma Burkitt-like lymphoma
     Dosage: 375 MILLIGRAM/SQ. METER
     Dates: start: 20251010, end: 20251010
  3. IFOSFAMIDE [Suspect]
     Active Substance: IFOSFAMIDE
     Indication: High grade B-cell lymphoma Burkitt-like lymphoma
     Dosage: 6600 MILLIGRAM
     Dates: start: 20251010, end: 20251010
  4. ETOPOSIDE [Suspect]
     Active Substance: ETOPOSIDE
     Indication: High grade B-cell lymphoma Burkitt-like lymphoma
     Dosage: 188 MILLIGRAM
     Dates: start: 20251010, end: 20251010

REACTIONS (3)
  - Febrile bone marrow aplasia [Fatal]
  - Sepsis [Fatal]
  - Tumour lysis syndrome [Fatal]

NARRATIVE: CASE EVENT DATE: 20251015
